FAERS Safety Report 8658392 (Version 3)
Quarter: 2012Q4

REPORT INFORMATION
  Report Type: 
  Country: US (occurrence: US)
  Receive Date: 20120710
  Receipt Date: 20121008
  Transmission Date: 20130627
  Serious: Yes (Hospitalization, Other)
  Sender: FDA-Public Use
  Company Number: US-TEVA-346601USA

PATIENT
  Sex: Male

DRUGS (10)
  1. PROAIR HFA [Suspect]
     Indication: ASTHMA
     Dosage: Rescue only once or twice a month
     Route: 055
  2. QVAR [Suspect]
     Indication: DYSPNOEA
     Dosage: 2 puffs am and pm
     Route: 055
  3. CETIRIZINE [Concomitant]
  4. OXYCODONE [Concomitant]
     Indication: MIGRAINE
     Dosage: as needed
  5. LIPITOR [Concomitant]
  6. VERAPAMIL [Concomitant]
  7. FISH OIL [Concomitant]
  8. LISINOPRIL [Concomitant]
  9. ASA [Concomitant]
  10. DIVALPROEX SODIUM [Concomitant]

REACTIONS (5)
  - Cerebrovascular accident [Unknown]
  - Aphasia [Unknown]
  - Asthenia [Unknown]
  - Nausea [Unknown]
  - Malaise [Unknown]
